FAERS Safety Report 5975784-1 (Version None)
Quarter: 2008Q4

REPORT INFORMATION
  Report Type: 
  Country: None (occurrence: None)
  Receive Date: 20081202
  Receipt Date: 20080210
  Transmission Date: 20090506
  Serious: No
  Sender: FDA-Public Use
  Company Number: US-AMGEN-KDL264855

PATIENT
  Sex: Female

DRUGS (2)
  1. ENBREL [Suspect]
     Indication: RHEUMATOID ARTHRITIS
     Route: 058
     Dates: start: 19960101
  2. PLAQUENIL [Concomitant]
     Route: 048
     Dates: start: 19950101

REACTIONS (6)
  - BUNION [None]
  - FOOT DEFORMITY [None]
  - HERPES ZOSTER [None]
  - MYALGIA [None]
  - NASOPHARYNGITIS [None]
  - SINUSITIS [None]
